FAERS Safety Report 8113919-5 (Version None)
Quarter: 2012Q1

REPORT INFORMATION
  Report Type: 
  Country: None (occurrence: None)
  Receive Date: 20120203
  Receipt Date: 20120125
  Transmission Date: 20120608
  Serious: Yes (Other)
  Sender: FDA-Public Use
  Company Number: US-ROCHE-1008906

PATIENT
  Sex: Female
  Weight: 75.364 kg

DRUGS (2)
  1. ACCUTANE [Suspect]
     Indication: ACNE
     Dates: start: 20000508, end: 20010701
  2. ASPIRIN [Concomitant]

REACTIONS (7)
  - DEPRESSION [None]
  - IRRITABLE BOWEL SYNDROME [None]
  - DIVERTICULUM [None]
  - RECTAL HAEMORRHAGE [None]
  - COLITIS [None]
  - GASTRITIS [None]
  - ANAL FISSURE [None]
